FAERS Safety Report 9002422 (Version 1)
Quarter: 2013Q1

REPORT INFORMATION
  Report Type: Spontaneous
  Country: US (occurrence: US)
  Receive Date: 20130107
  Receipt Date: 20130107
  Transmission Date: 20140127
  Serious: Yes (Hospitalization, Other)
  Sender: FDA-Public Use
  Company Number: US-009507513-0307USA02169

PATIENT
  Age: 5 Year
  Sex: Female

DRUGS (4)
  1. SINGULAIR [Suspect]
     Indication: ASTHMA
     Dosage: UNK UNK, PRN
     Route: 048
     Dates: start: 2000
  2. ZYRTEC [Concomitant]
     Indication: ASTHMA
     Dosage: 3.75 ML, UNK
     Dates: start: 2000
  3. BENADRYL [Concomitant]
     Indication: ECZEMA
     Dosage: 1.25 ML, UNK
     Dates: start: 199806
  4. BENADRYL [Concomitant]
     Indication: DERMATITIS ATOPIC
     Dosage: 5 ML, UNK

REACTIONS (8)
  - Upper respiratory tract infection [Recovered/Resolved]
  - Asthma [Unknown]
  - Hypersensitivity [Recovered/Resolved]
  - Pneumonia [Recovered/Resolved]
  - Ear infection [Recovered/Resolved]
  - Hallucination [Recovered/Resolved]
  - Vesicoureteric reflux [Unknown]
  - Kidney infection [Unknown]
